FAERS Safety Report 23557970 (Version 1)
Quarter: 2024Q1

REPORT INFORMATION
  Report Type: Spontaneous
  Country: US (occurrence: US)
  Receive Date: 20240223
  Receipt Date: 20240223
  Transmission Date: 20240409
  Serious: Yes (Hospitalization)
  Sender: FDA-Public Use
  Company Number: US-DRL-USA-LIT/USA/24/0002783

PATIENT
  Age: 41 Year
  Sex: Female

DRUGS (2)
  1. DOFETILIDE [Suspect]
     Active Substance: DOFETILIDE
     Indication: Supraventricular tachycardia
  2. NADOLOL [Suspect]
     Active Substance: NADOLOL
     Indication: Supraventricular tachycardia

REACTIONS (1)
  - Drug ineffective [Unknown]
